FAERS Safety Report 6348947-3 (Version None)
Quarter: 2009Q3

REPORT INFORMATION
  Report Type: 
  Country: None (occurrence: None)
  Receive Date: 20090911
  Receipt Date: 20090814
  Transmission Date: 20100115
  Serious: No
  Sender: FDA-Public Use
  Company Number: US-BAYER-200913494BCC

PATIENT
  Age: 51 Year
  Sex: Female
  Weight: 84 kg

DRUGS (5)
  1. NAPROXEN SODIUM [Suspect]
     Indication: PLANTAR FASCIITIS
     Dosage: TOTAL DAILY DOSE: 880 MG  UNIT DOSE: 220 MG
     Route: 048
     Dates: start: 20090812, end: 20090813
  2. LAMICTAL [Concomitant]
     Route: 065
  3. BENICAR [Concomitant]
     Route: 065
  4. KLONOPIN [Concomitant]
     Route: 065
  5. IMODIUM [Concomitant]
     Route: 065
     Dates: start: 20090813

REACTIONS (2)
  - ABDOMINAL PAIN [None]
  - DIARRHOEA [None]
